FAERS Safety Report 12975883 (Version 1)
Quarter: 2016Q4

REPORT INFORMATION
  Report Type: Spontaneous
  Country: FR (occurrence: FR)
  Receive Date: 20161125
  Receipt Date: 20161125
  Transmission Date: 20170207
  Serious: Yes (Life-Threatening, Other)
  Sender: FDA-Public Use
  Company Number: FR-UCBSA-2016044235

PATIENT
  Age: 59 Year
  Sex: Male

DRUGS (20)
  1. PROPOFOL. [Suspect]
     Active Substance: PROPOFOL
     Indication: GENERAL ANAESTHESIA
     Dosage: 200 MG, ONCE DAILY (QD)
     Route: 042
     Dates: start: 20160919, end: 20160919
  2. MODOPAR [Suspect]
     Active Substance: BENSERAZIDE HYDROCHLORIDE\LEVODOPA
     Indication: PARKINSON^S DISEASE
     Dosage: 125 MG, 4X/DAY (QID)
     Route: 048
     Dates: start: 20160920, end: 2016
  3. RIVOTRIL [Suspect]
     Active Substance: CLONAZEPAM
     Indication: AGITATION
     Dosage: 2.5 MG, 3X/DAY (TID)
     Route: 048
     Dates: start: 20160920, end: 201609
  4. DEROXAT [Concomitant]
     Active Substance: PAROXETINE HYDROCHLORIDE
     Indication: ANTIDEPRESSANT THERAPY
     Dosage: UNK
     Dates: start: 20160924
  5. NEUPRO [Suspect]
     Active Substance: ROTIGOTINE
     Indication: PARKINSON^S DISEASE
     Dosage: 12 MG, ONCE DAILY (QD)
     Route: 003
     Dates: start: 201205, end: 20160920
  6. STALEVO [Suspect]
     Active Substance: CARBIDOPA\ENTACAPONE\LEVODOPA
     Dosage: 200 MG, 8X/DAY, DOSE DOUBLED
     Dates: start: 201609, end: 20160920
  7. MODOPAR [Suspect]
     Active Substance: BENSERAZIDE HYDROCHLORIDE\LEVODOPA
     Dosage: 125 MG, 4X/DAY (QID) (DOSE DECREASED TO 125 MG 4/DAY)
     Dates: start: 201610
  8. VALIUM [Suspect]
     Active Substance: DIAZEPAM
     Indication: PRODUCT USED FOR UNKNOWN INDICATION
     Dosage: 10 MG, ONCE DAILY (QD)
     Route: 030
     Dates: start: 20160920, end: 2016
  9. LEPONEX [Concomitant]
     Active Substance: CLOZAPINE
     Dosage: 25 MG 1.5 TABLET /DAY, ONCE DAILY (QD)
     Dates: start: 2016, end: 2016
  10. MANTADIX [Suspect]
     Active Substance: AMANTADINE HYDROCHLORIDE
     Indication: PARKINSON^S DISEASE
     Dosage: 2 DF
     Route: 048
     Dates: start: 2013, end: 20160920
  11. MODOPAR [Suspect]
     Active Substance: BENSERAZIDE HYDROCHLORIDE\LEVODOPA
     Dosage: DOSAGE WAS INCREASED
     Dates: start: 2016, end: 2016
  12. STALEVO [Suspect]
     Active Substance: CARBIDOPA\ENTACAPONE\LEVODOPA
     Indication: PARKINSON^S DISEASE
     Dosage: 100 MG, 8X/DAY
     Route: 048
     Dates: start: 2012
  13. SUFENTA [Suspect]
     Active Substance: SUFENTANIL CITRATE
     Indication: GENERAL ANAESTHESIA
     Dosage: 20 ?G, ONCE DAILY (QD)
     Route: 042
     Dates: start: 20160919, end: 20160919
  14. LEPONEX [Concomitant]
     Active Substance: CLOZAPINE
     Indication: PRODUCT USED FOR UNKNOWN INDICATION
     Dosage: 1/2, TABET
     Dates: start: 20160921, end: 2016
  15. RIVOTRIL [Suspect]
     Active Substance: CLONAZEPAM
     Dosage: GRADUALLY DECREASED
     Dates: start: 201609, end: 20161006
  16. VALIUM [Suspect]
     Active Substance: DIAZEPAM
     Dosage: 5 MG, 1-1-2 , 3X/DAY (TID)
     Dates: start: 2016
  17. LEPONEX [Concomitant]
     Active Substance: CLOZAPINE
     Dosage: GRADUALLY DECREASED
     Dates: start: 2016, end: 2016
  18. AZILECT [Suspect]
     Active Substance: RASAGILINE MESYLATE
     Indication: PARKINSON^S DISEASE
     Dosage: 1 MG, ONCE DAILY (QD)
     Route: 048
     Dates: start: 2015, end: 20160920
  19. LEPONEX [Concomitant]
     Active Substance: CLOZAPINE
     Dosage: REINTRODUCTION OF LEPONEX 25 MG 0.5-0-0.5 , 2X/DAY (BID)
  20. RITALINE [Suspect]
     Active Substance: METHYLPHENIDATE HYDROCHLORIDE
     Indication: PARKINSON^S DISEASE
     Dosage: 30 MG, ONCE DAILY (QD)
     Route: 048
     Dates: start: 201603, end: 20160920

REACTIONS (3)
  - Suicide attempt [Recovered/Resolved]
  - Delirium [Recovered/Resolved]
  - Confusional state [Recovered/Resolved]

NARRATIVE: CASE EVENT DATE: 201609
